FAERS Safety Report 23979124 (Version 1)
Quarter: 2024Q2

REPORT INFORMATION
  Report Type: Spontaneous
  Country: CN (occurrence: CN)
  Receive Date: 20240615
  Receipt Date: 20240615
  Transmission Date: 20240716
  Serious: Yes (Other)
  Sender: FDA-Public Use
  Company Number: None

PATIENT
  Age: 68 Year
  Sex: Female
  Weight: 51 kg

DRUGS (3)
  1. TRASTUZUMAB [Suspect]
     Active Substance: TRASTUZUMAB
     Indication: Paget^s disease of nipple
     Dosage: 300 MILLIGRAM, QD, STRENGTH: 150 MILLIGRAM
     Route: 042
     Dates: start: 20240518, end: 20240518
  2. DOCETAXEL [Suspect]
     Active Substance: DOCETAXEL\DOCETAXEL ANHYDROUS
     Indication: Paget^s disease of nipple
     Dosage: 100 MILLIGRAM, QD
     Route: 042
     Dates: start: 20240518, end: 20240518
  3. CARBOPLATIN [Suspect]
     Active Substance: CARBOPLATIN
     Indication: Paget^s disease of nipple
     Dosage: 400 MILLIGRAM, QD
     Route: 042
     Dates: start: 20240518, end: 20240518

REACTIONS (1)
  - Myelosuppression [Recovering/Resolving]

NARRATIVE: CASE EVENT DATE: 20240527
